FAERS Safety Report 11687589 (Version 4)
Quarter: 2020Q4

REPORT INFORMATION
  Report Type: Spontaneous
  Country: FI (occurrence: FI)
  Receive Date: 20151030
  Receipt Date: 20201117
  Transmission Date: 20210113
  Serious: Yes (Other)
  Sender: FDA-Public Use
  Company Number: PHHY2015FI141514

PATIENT
  Sex: Male
  Weight: 2.22 kg

DRUGS (48)
  1. LEVETIRACETAM. [Suspect]
     Active Substance: LEVETIRACETAM
     Dosage: MATERNAL DOSE:DOSE INCREASED DAY 2 AND DAY 3
     Route: 064
  2. LACOSAMIDE. [Suspect]
     Active Substance: LACOSAMIDE
     Dosage: MATERNAL DOSE: 100 MG, 2X/DAY (BID)
     Route: 064
     Dates: start: 20120730
  3. ENOXAPARIN [Suspect]
     Active Substance: ENOXAPARIN
     Dosage: MATERNAL DOSE: 60 MG, BID
     Route: 064
  4. KEPPRA [Suspect]
     Active Substance: LEVETIRACETAM
     Indication: FOETAL EXPOSURE DURING PREGNANCY
     Dosage: MATERNAL DOSE: 3000 MG, UNK (REACTION GESTATION PERIOD 9 WEEKS)
     Route: 064
  5. FOLVITE [Suspect]
     Active Substance: FOLIC ACID
     Indication: FOETAL EXPOSURE DURING PREGNANCY
     Dosage: MATERNAL DOSE: 4 MG, QD
     Route: 064
     Dates: start: 20120816, end: 20130206
  6. PHENYTOINE [Suspect]
     Active Substance: PHENYTOIN
     Indication: FOETAL EXPOSURE DURING PREGNANCY
     Dosage: UNK
     Route: 064
  7. ATIVAN [Suspect]
     Active Substance: LORAZEPAM
     Indication: FOETAL EXPOSURE DURING PREGNANCY
     Dosage: UNK
     Route: 064
  8. FOSPHENYTOIN [Suspect]
     Active Substance: FOSPHENYTOIN
     Dosage: MATERNAL DOSE: 250 MG, Q12H
     Route: 064
  9. FOSPHENYTOIN [Suspect]
     Active Substance: FOSPHENYTOIN
     Dosage: LOADING DOSE
     Route: 064
  10. LEVETIRACETAM. [Suspect]
     Active Substance: LEVETIRACETAM
     Route: 065
  11. LACOSAMIDE. [Suspect]
     Active Substance: LACOSAMIDE
     Dosage: MTAERNAL DOSE: 300 MG, QD
     Route: 064
  12. ENOXAPARIN [Suspect]
     Active Substance: ENOXAPARIN
     Dosage: 60 MILLIGRAM, 2X/DAY (BID)
     Route: 064
  13. KEPPRA [Suspect]
     Active Substance: LEVETIRACETAM
     Dosage: MATERNAL DOSE: (REACTION GESTATION PERIOD 9 WEEKS)
     Route: 064
  14. ALBETOL [Suspect]
     Active Substance: LABETALOL HYDROCHLORIDE
     Indication: FOETAL EXPOSURE DURING PREGNANCY
     Dosage: MATERNAL DOSE: 100 MG, BID
     Route: 064
     Dates: start: 20120817, end: 20130206
  15. HEPARIN [Suspect]
     Active Substance: HEPARIN SODIUM
     Indication: FOETAL EXPOSURE DURING PREGNANCY
     Dosage: UNKNOWN DOSE
     Route: 064
     Dates: start: 20120728, end: 20120729
  16. PRO-EPANUTIN [Suspect]
     Active Substance: FOSPHENYTOIN SODIUM
     Dosage: MATERNAL DOSE: 600 MG, UNK
     Route: 064
  17. AMOXIN COMP [Suspect]
     Active Substance: AMOXICILLIN\CLAVULANIC ACID
     Indication: FOETAL EXPOSURE DURING PREGNANCY
     Dosage: UNKNOWN DOSE
     Route: 064
     Dates: start: 20120820, end: 20120824
  18. FOSPHENYTOIN [Suspect]
     Active Substance: FOSPHENYTOIN
     Indication: FOETAL EXPOSURE DURING PREGNANCY
     Dosage: MATERNAL DOSE: DOSE INCREASED DAY 2 AND 3
     Route: 064
  19. LEVETIRACETAM. [Suspect]
     Active Substance: LEVETIRACETAM
     Indication: FOETAL EXPOSURE DURING PREGNANCY
     Dosage: MATERNAL DOSE: 3000 MG, UNK ( 9 WEEKS)
     Route: 064
  20. KEPPRA [Suspect]
     Active Substance: LEVETIRACETAM
     Dosage: UNKNOWN DOSE
     Route: 063
  21. BIOPHILUS [Suspect]
     Active Substance: DIETARY SUPPLEMENT\PROBIOTICS
     Indication: FOETAL EXPOSURE DURING PREGNANCY
     Dosage: UNKNOWN DOSE
     Route: 064
     Dates: start: 20120820, end: 20120828
  22. LACOSAMIDE. [Suspect]
     Active Substance: LACOSAMIDE
     Dosage: MATERNAL DOSE: 100 MG, BID
     Route: 064
     Dates: start: 20120730
  23. KLEXANE [Suspect]
     Active Substance: ENOXAPARIN
     Indication: FOETAL EXPOSURE DURING PREGNANCY
     Dosage: MATERNAL DOSE: 80 MG, QD
     Route: 063
     Dates: start: 20120729, end: 20130206
  24. LORAZEPAM. [Suspect]
     Active Substance: LORAZEPAM
     Dosage: MATERNAL DOSE: 6 MG/G, QD
     Route: 064
  25. PRO-EPANUTIN [Suspect]
     Active Substance: FOSPHENYTOIN SODIUM
     Indication: FOETAL EXPOSURE DURING PREGNANCY
     Dosage: MATERNAL DOSE: 250 MG, BID
     Route: 064
     Dates: start: 20120729, end: 20120814
  26. LABETALOL [Suspect]
     Active Substance: LABETALOL\LABETALOL HYDROCHLORIDE
     Indication: FOETAL EXPOSURE DURING PREGNANCY
     Route: 064
  27. MIDAZOLAM. [Suspect]
     Active Substance: MIDAZOLAM
     Indication: FOETAL EXPOSURE DURING PREGNANCY
     Dosage: UNK
     Route: 065
  28. LEVETIRACETAM. [Suspect]
     Active Substance: LEVETIRACETAM
     Dosage: MATERNAL DOSE: 1000 MG, BID
     Route: 064
  29. CEFTRIAXONE. [Suspect]
     Active Substance: CEFTRIAXONE
     Indication: FOETAL EXPOSURE DURING PREGNANCY
     Dosage: UNK
     Route: 064
  30. ENOXAPARIN [Suspect]
     Active Substance: ENOXAPARIN
     Indication: FOETAL EXPOSURE DURING PREGNANCY
     Dosage: MATERNAL DOSE: 40 MG, BID
     Route: 064
     Dates: start: 20120729
  31. KEPPRA [Suspect]
     Active Substance: LEVETIRACETAM
     Dosage: MATERNAL DOSE: 1000 MG, BID (REACTION GESTATION PERIOD 9 WEEK)
     Route: 064
     Dates: start: 20120729
  32. PROPOFOL. [Suspect]
     Active Substance: PROPOFOL
     Indication: FOETAL EXPOSURE DURING PREGNANCY
     Dosage: UNK
     Route: 064
  33. LORAZEPAM. [Suspect]
     Active Substance: LORAZEPAM
     Indication: FOETAL EXPOSURE DURING PREGNANCY
     Dosage: MATERNAL DOSE: 6 MG, UNK
     Route: 064
  34. DIAZEPAM. [Suspect]
     Active Substance: DIAZEPAM
     Indication: FOETAL EXPOSURE DURING PREGNANCY
     Dosage: MATERNAL DOSE: 10 MG
     Route: 064
  35. LEVETIRACETAM. [Suspect]
     Active Substance: LEVETIRACETAM
     Dosage: 1000 MG, Q12H
     Route: 064
  36. KEPPRA [Suspect]
     Active Substance: LEVETIRACETAM
     Dosage: MATERNAL DOSE: 1000 UNK (REACTION GESTATION PERIOD 9 WEEKS)
     Route: 064
  37. KLEXANE [Suspect]
     Active Substance: ENOXAPARIN
     Dosage: MATERNAL DOSE: 40 MG, BID
     Route: 064
     Dates: start: 20130206, end: 201302
  38. OBSIDAN (FERROUS GLYCINE SULFATE) [Suspect]
     Active Substance: FERROUS GLYCINE SULFATE
     Indication: FOETAL EXPOSURE DURING PREGNANCY
     Dosage: UNKNOWN DOSE
     Route: 064
     Dates: start: 20120815, end: 20120903
  39. LEVETIRACETAM. [Suspect]
     Active Substance: LEVETIRACETAM
     Dosage: MATERNAL DOSE: UNK ( 9 WEEKS)
     Route: 064
  40. LEVETIRACETAM. [Suspect]
     Active Substance: LEVETIRACETAM
     Dosage: MATERNAL DOSE: 1000 MG, UNK
     Route: 064
  41. ALBETOL [Suspect]
     Active Substance: LABETALOL HYDROCHLORIDE
     Dosage: MATERNAL DOSE: 100 MG, BID
     Route: 064
     Dates: start: 20130206, end: 201302
  42. SOMAC [Suspect]
     Active Substance: PANTOPRAZOLE SODIUM
     Indication: FOETAL EXPOSURE DURING PREGNANCY
     Dosage: UNKNOWN DOSE
     Route: 064
     Dates: start: 20120729, end: 20120814
  43. TAZOCIN [Suspect]
     Active Substance: PIPERACILLIN SODIUM\TAZOBACTAM SODIUM
     Indication: FOETAL EXPOSURE DURING PREGNANCY
     Dosage: UNK
     Route: 064
  44. HYDANTIN [Suspect]
     Active Substance: PHENYTOIN
     Indication: FOETAL EXPOSURE DURING PREGNANCY
     Dosage: UNKNOWN DOSE
     Route: 064
     Dates: start: 20120814, end: 20120910
  45. FOSPHENYTOIN [Suspect]
     Active Substance: FOSPHENYTOIN
     Dosage: MATERNAL DOSE:600 MG, QD
     Route: 064
  46. LEVETIRACETAM. [Suspect]
     Active Substance: LEVETIRACETAM
     Dosage: MATERNAL DOSE: 1000 MG
     Route: 064
  47. LACOSAMIDE. [Suspect]
     Active Substance: LACOSAMIDE
     Indication: FOETAL EXPOSURE DURING PREGNANCY
     Dosage: MATERNAL DOSE: 200 MG, QD
     Route: 064
     Dates: start: 201207, end: 201207
  48. STESOLID [Suspect]
     Active Substance: DIAZEPAM
     Indication: FOETAL EXPOSURE DURING PREGNANCY
     Dosage: MATERNAL DOSE: 10 MG, UNK
     Route: 064

REACTIONS (6)
  - Feeding disorder [Unknown]
  - Premature baby [Unknown]
  - Low birth weight baby [Unknown]
  - Foetal exposure during pregnancy [Unknown]
  - Somnolence [Unknown]
  - Exposure via breast milk [Unknown]

NARRATIVE: CASE EVENT DATE: 2013
